FAERS Safety Report 11358821 (Version 1)
Quarter: 2015Q3

REPORT INFORMATION
  Report Type: Spontaneous
  Country: US (occurrence: None)
  Receive Date: 20150807
  Receipt Date: 20150807
  Transmission Date: 20151125
  Serious: Yes (Death)
  Sender: FDA-Public Use
  Company Number: None

PATIENT
  Age: 40 Year
  Sex: Female
  Weight: 65.5 kg

DRUGS (3)
  1. OXYCODONE [Concomitant]
     Active Substance: OXYCODONE
  2. FENTANYL. [Concomitant]
     Active Substance: FENTANYL
  3. XELODA [Suspect]
     Active Substance: CAPECITABINE
     Dates: end: 20150219

REACTIONS (10)
  - Ascites [None]
  - Liver abscess [None]
  - Sepsis [None]
  - Pneumonia [None]
  - Acute kidney injury [None]
  - Pelvic mass [None]
  - Urinary tract infection [None]
  - Hepatic cyst [None]
  - Dehydration [None]
  - Mental status changes [None]

NARRATIVE: CASE EVENT DATE: 20150309
